FAERS Safety Report 6654943-9 (Version None)
Quarter: 2010Q1

REPORT INFORMATION
  Report Type: 
  Country: None (occurrence: None)
  Receive Date: 20100329
  Receipt Date: 20100319
  Transmission Date: 20100710
  Serious: No
  Sender: FDA-Public Use
  Company Number: US-BIOGENIDEC-2010BI009228

PATIENT
  Age: 45 Year
  Sex: Female

DRUGS (2)
  1. AVONEX [Suspect]
     Indication: MULTIPLE SCLEROSIS
     Route: 030
     Dates: start: 19990201, end: 20030830
  2. AVONEX [Suspect]
     Route: 030
     Dates: start: 20030830

REACTIONS (4)
  - ANXIETY [None]
  - INJECTION SITE PAIN [None]
  - MUSCLE SPASMS [None]
  - SKIN HYPERTROPHY [None]
